FAERS Safety Report 9407021 (Version 2)
Quarter: 2013Q3

REPORT INFORMATION
  Report Type: Spontaneous
  Country: US (occurrence: US)
  Receive Date: 20130718
  Receipt Date: 20130830
  Transmission Date: 20140515
  Serious: Yes (Other)
  Sender: FDA-Public Use
  Company Number: US-JNJFOC-20130708500

PATIENT
  Sex: 0

DRUGS (1)
  1. EVICEL [Suspect]
     Indication: FACE LIFT
     Route: 061

REACTIONS (2)
  - Subcutaneous emphysema [Unknown]
  - Off label use [Unknown]
